FAERS Safety Report 8273987-7 (Version None)
Quarter: 2012Q2

REPORT INFORMATION
  Report Type: 
  Country: None (occurrence: None)
  Receive Date: 20120409
  Receipt Date: 20120330
  Transmission Date: 20120825
  Serious: Yes (Other)
  Sender: FDA-Public Use
  Company Number: 2011MA000912

PATIENT
  Sex: Female
  Weight: 55.7924 kg

DRUGS (37)
  1. CIPROFLOXACIN HYDROCHLORIDE [Concomitant]
  2. HYOSCYAMINE [Concomitant]
  3. NORTRIPTYLINE HCL [Concomitant]
  4. AMITIZA [Concomitant]
  5. COUMADIN [Concomitant]
  6. LOVENOX [Concomitant]
  7. PANCRELIPASE [Concomitant]
  8. PRILOSEC [Concomitant]
  9. ALPRAZOLAM [Concomitant]
  10. CARTIA XT [Concomitant]
  11. LISINOPRIL [Concomitant]
  12. OXYBUTYNIN [Concomitant]
  13. VITAMIN D [Concomitant]
  14. WELCHOL [Concomitant]
  15. CEPHALEXIN [Concomitant]
  16. DILTIAZEM HCL [Concomitant]
  17. PANGESTYME [Concomitant]
  18. TRAMADOL HCL [Concomitant]
  19. WARFARIN SODIUM [Concomitant]
  20. ANTIBIOTICS [Concomitant]
  21. GEMFIBROZIL [Concomitant]
  22. PROMETHAZINE [Concomitant]
  23. VICODIN [Concomitant]
  24. BOOST [Concomitant]
  25. METOCLOPRAMIDE [Suspect]
     Indication: GASTROOESOPHAGEAL REFLUX DISEASE
     Dosage: 10 MG;QID;PO
     Route: 048
     Dates: start: 20060213, end: 20090901
  26. METOPROLOL TARTRATE [Concomitant]
  27. OXYCODONE HCL AND ACETAMINOPHEN [Concomitant]
  28. PEPCID [Concomitant]
  29. ALBUTEROL [Concomitant]
  30. ANALGESIC [Concomitant]
  31. SODIUM BICARBONATE [Concomitant]
  32. RECLAST [Concomitant]
  33. DOMPERIDONE [Concomitant]
  34. COLACE [Concomitant]
  35. CYPROHEPTADINE HCL [Concomitant]
  36. LEVOTHYOXINE [Concomitant]
  37. PRAVASTATIN [Concomitant]

REACTIONS (27)
  - TRISMUS [None]
  - CHEST DISCOMFORT [None]
  - ASTHENIA [None]
  - TREMOR [None]
  - PROCTALGIA [None]
  - INCONTINENCE [None]
  - ABDOMINAL ADHESIONS [None]
  - TARDIVE DYSKINESIA [None]
  - OSTEOPOROSIS [None]
  - NAUSEA [None]
  - ILEUS [None]
  - DIVERTICULUM [None]
  - DYSPNOEA [None]
  - ANXIETY [None]
  - WEIGHT DECREASED [None]
  - BALANCE DISORDER [None]
  - DYSARTHRIA [None]
  - ABDOMINAL RIGIDITY [None]
  - RENAL FAILURE [None]
  - MUSCULOSKELETAL CHEST PAIN [None]
  - BRONCHITIS [None]
  - VOMITING [None]
  - HYPERTENSION [None]
  - RECTAL HAEMORRHAGE [None]
  - GASTRITIS [None]
  - DYSPHAGIA [None]
  - PANCREATIC INSUFFICIENCY [None]
